FAERS Safety Report 4649626-0 (Version None)
Quarter: 2005Q2

REPORT INFORMATION
  Report Type: 
  Country: None (occurrence: None)
  Receive Date: 20050428
  Receipt Date: 20050317
  Transmission Date: 20051028
  Serious: Yes (Death)
  Sender: FDA-Public Use
  Company Number: 2005S1001328

PATIENT
  Age: 57 Year
  Sex: Male

DRUGS (10)
  1. CLOZAPINE [Suspect]
     Dosage: SEE IMAGE
     Route: 048
  2. TIOPROPIUM BROMIDE [Concomitant]
  3. LANSOPRAZOLE [Concomitant]
  4. DOCUSATE CALCIUM [Concomitant]
  5. SALMETEROL XINAFOATE [Concomitant]
  6. ESCITALOPRAM [Concomitant]
  7. GEFITINIB [Concomitant]
  8. PROCHLORPERAZINE [Concomitant]
  9. DEXAMETHASONE [Concomitant]
  10. ENSURE [Concomitant]

REACTIONS (1)
  - NEOPLASM MALIGNANT [None]
